FAERS Safety Report 9215461 (Version 1)
Quarter: 2013Q2

REPORT INFORMATION
  Report Type: Spontaneous
  Country: US (occurrence: US)
  Receive Date: 20130405
  Receipt Date: 20130405
  Transmission Date: 20140414
  Serious: Yes (Other)
  Sender: FDA-Public Use
  Company Number: US-ALLERGAN-1304481US

PATIENT
  Age: 30 Year
  Sex: Female

DRUGS (9)
  1. BOTOX COSMETIC [Suspect]
     Indication: SKIN WRINKLING
     Dosage: 26 UNITS, SINGLE
     Route: 030
     Dates: start: 20130222, end: 20130222
  2. BOTOX COSMETIC [Suspect]
     Indication: SKIN WRINKLING
     Dosage: UNK, SINGLE
     Route: 030
     Dates: start: 20121201, end: 20121201
  3. BOTOX COSMETIC [Suspect]
     Dosage: UNK UNK, SINGLE
     Route: 030
     Dates: start: 201211, end: 201211
  4. BOTOX COSMETIC [Suspect]
     Dosage: UNK, SINGLE
     Route: 030
     Dates: start: 201210, end: 201210
  5. IV CONTRAST DYE NOS [Suspect]
     Indication: PRODUCT USED FOR UNKNOWN INDICATION
     Dosage: UNK
     Route: 042
     Dates: start: 20130325, end: 20130325
  6. VYVANSE [Concomitant]
     Indication: PRODUCT USED FOR UNKNOWN INDICATION
     Dosage: 70 MG, QD
     Route: 048
  7. DIAZEPAM [Concomitant]
     Indication: ANXIETY
     Dosage: 2.5 MG, PRN
     Route: 048
  8. NORCO [Concomitant]
     Indication: ENDOMETRIOSIS
     Dosage: 5/325MG 1/2 TAB
     Route: 048
     Dates: start: 201207
  9. CORRECTOL                          /00061602/ [Concomitant]
     Indication: CONSTIPATION

REACTIONS (4)
  - Contrast media reaction [Unknown]
  - Influenza like illness [Unknown]
  - Eye swelling [Unknown]
  - Off label use [Unknown]
